FAERS Safety Report 5449757-1 (Version None)
Quarter: 2007Q3

REPORT INFORMATION
  Report Type: 
  Country: None (occurrence: None)
  Receive Date: 20070910
  Receipt Date: 20070829
  Transmission Date: 20080115
  Serious: Yes (Life-Threatening)
  Sender: FDA-Public Use
  Company Number: GXKR2007GB07486

PATIENT
  Age: 21 Year
  Sex: Male
  Weight: 88.9 kg

DRUGS (3)
  1. PAROXETINE HCL [Suspect]
     Indication: ANXIETY
     Dosage: 20 MG, QD, ORAL
     Route: 048
     Dates: start: 20070804, end: 20070807
  2. DOSULEPIN (DOSULEPIN) [Concomitant]
  3. PROPRANOLOL [Concomitant]

REACTIONS (2)
  - AGGRESSION [None]
  - SUICIDAL IDEATION [None]
